FAERS Safety Report 6144338-9 (Version None)
Quarter: 2009Q2

REPORT INFORMATION
  Report Type: 
  Country: None (occurrence: None)
  Receive Date: 20090406
  Receipt Date: 20090326
  Transmission Date: 20091009
  Serious: Yes (Life-Threatening)
  Sender: FDA-Public Use
  Company Number: JP-BAYER-200910925BYL

PATIENT
  Age: 49 Year

DRUGS (39)
  1. FLUDARA [Suspect]
     Indication: ALLOGENIC BONE MARROW TRANSPLANTATION THERAPY
     Dosage: AS USED: 50 MG  UNIT DOSE: 50 MG
     Route: 042
     Dates: start: 20080620, end: 20080625
  2. SANDIMMUNE [Suspect]
     Indication: PROPHYLAXIS AGAINST GRAFT VERSUS HOST DISEASE
     Route: 042
     Dates: start: 20080626, end: 20080814
  3. DENOSINE [Suspect]
     Indication: CYTOMEGALOVIRUS VIRAEMIA
     Route: 042
  4. DENOSINE [Suspect]
     Dosage: AS USED: 0.25 G
     Route: 042
     Dates: start: 20080719, end: 20080820
  5. CYCLOPHOSPHAMIDE [Concomitant]
     Indication: ALLOGENIC BONE MARROW TRANSPLANTATION THERAPY
     Dosage: AS USED: 3000 MG
     Route: 042
     Dates: start: 20080620, end: 20080620
  6. LYMPHOGLOBULINE [Concomitant]
     Indication: PROPHYLAXIS AGAINST GRAFT VERSUS HOST DISEASE
     Dosage: AS USED: 700 MG
     Route: 042
     Dates: start: 20080624, end: 20080625
  7. METHOTREXATE [Concomitant]
     Indication: PROPHYLAXIS AGAINST GRAFT VERSUS HOST DISEASE
     Dosage: AS USED: 18 MG
     Route: 042
     Dates: start: 20080703, end: 20080703
  8. METHOTREXATE [Concomitant]
     Dosage: AS USED: 18 MG
     Route: 042
     Dates: start: 20080630, end: 20080630
  9. METHOTREXATE [Concomitant]
     Dosage: AS USED: 18 MG
     Route: 042
     Dates: start: 20080708, end: 20080708
  10. METHOTREXATE [Concomitant]
     Dosage: AS USED: 25 MG
     Route: 042
     Dates: start: 20080628, end: 20080628
  11. GRAN [Concomitant]
     Dosage: AS USED: 600 ?G
     Route: 042
     Dates: start: 20080628, end: 20080718
  12. CRAVIT [Concomitant]
     Indication: INFECTION PROPHYLAXIS
     Dosage: AS USED: 300 MG
     Route: 048
     Dates: start: 20080619
  13. ITRIZOLE [Concomitant]
     Indication: INFECTION PROPHYLAXIS
     Dosage: AS USED: 200 MG
     Route: 048
     Dates: start: 20080619, end: 20080727
  14. BAKTAR [Concomitant]
     Indication: INFECTION PROPHYLAXIS
     Dosage: AS USED: 3 DF  UNIT DOSE: 1 DF
     Route: 048
     Dates: start: 20080619, end: 20080626
  15. UROMITEXAN [Concomitant]
     Dosage: AS USED: 4800 MG
     Route: 042
     Dates: start: 20080620, end: 20080620
  16. MEROPEN [Concomitant]
     Indication: INFECTION PROPHYLAXIS
     Dosage: AS USED: 1 G
     Route: 042
     Dates: start: 20080619, end: 20080620
  17. VICCLOX [Concomitant]
     Indication: INFECTION PROPHYLAXIS
     Dosage: AS USED: 500 MG
     Route: 042
     Dates: start: 20080619, end: 20080718
  18. GASTER [Concomitant]
     Dosage: AS USED: 20 MG
     Route: 042
     Dates: start: 20080619, end: 20080727
  19. HEPARIN SODIUM [Concomitant]
     Dosage: AS USED: 3000 U
     Route: 042
     Dates: start: 20080619
  20. SODIUM BICARBONATE [Concomitant]
     Dosage: AS USED: 80 ML
     Route: 042
     Dates: start: 20080620, end: 20080620
  21. URSO 250 [Concomitant]
     Dosage: AS USED: 600 MG
     Route: 048
     Dates: start: 20080619, end: 20080727
  22. HIBON [Concomitant]
     Dosage: AS USED: 120 MG
     Route: 048
     Dates: start: 20080619, end: 20080717
  23. LANSOPRAZOLE [Concomitant]
     Dosage: AS USED: 15 MG
     Route: 048
     Dates: start: 20080522, end: 20080726
  24. EXCEGRAN [Concomitant]
     Dosage: AS USED: 200 MG
     Route: 048
     Dates: start: 20080529, end: 20080818
  25. EPADEL S [Concomitant]
     Dosage: AS USED: 1800 MG
     Route: 048
     Dates: start: 20080607, end: 20080726
  26. AMLODIN OD [Concomitant]
     Dosage: AS USED: 5 MG
     Route: 048
     Dates: start: 20080703, end: 20080726
  27. NU-LOTAN [Concomitant]
     Dosage: AS USED: 50 MG
     Route: 048
     Dates: start: 20080708, end: 20080818
  28. LUPRAC [Concomitant]
     Dosage: AS USED: 4 MG
     Route: 048
     Dates: start: 20080704, end: 20080729
  29. ALDACTONE [Concomitant]
     Dosage: AS USED: 25 MG
     Route: 048
     Dates: start: 20080715, end: 20080726
  30. IMMUNE GLOBULIN INTRAVENOUS (HUMAN) [Concomitant]
     Indication: INFECTION PROPHYLAXIS
     Dosage: AS USED: 5 G
     Route: 042
     Dates: start: 20080626, end: 20080628
  31. OMEGACIN [Concomitant]
     Indication: INFECTION PROPHYLAXIS
     Dosage: AS USED: 1.2 G
     Route: 042
     Dates: start: 20080630, end: 20080710
  32. OMEGACIN [Concomitant]
     Dosage: AS USED: 1.2 G
     Route: 042
     Dates: start: 20080816, end: 20080820
  33. FINIBAX [Concomitant]
     Indication: INFECTION PROPHYLAXIS
     Dosage: AS USED: 0.75 G
     Route: 042
     Dates: start: 20080711, end: 20080801
  34. ORGARAN [Concomitant]
     Indication: INFECTION PROPHYLAXIS
     Dosage: AS USED: 2 ML
     Route: 042
     Dates: start: 20080701, end: 20080717
  35. MAXIPIME [Concomitant]
     Indication: INFECTION PROPHYLAXIS
     Dosage: AS USED: 2 G
     Route: 042
     Dates: start: 20080621, end: 20080629
  36. BROACT [Concomitant]
     Indication: INFECTION PROPHYLAXIS
     Dosage: AS USED: 2 G
     Route: 042
     Dates: start: 20080802, end: 20080815
  37. CONCENTRATED RED CELLS [Concomitant]
     Indication: PACKED RED BLOOD CELL TRANSFUSION
     Route: 042
     Dates: start: 20080624
  38. PLATELETS [Concomitant]
     Indication: PLATELET TRANSFUSION
     Route: 042
     Dates: start: 20080626, end: 20080819
  39. FRESH FROZEN PLASMA [Concomitant]
     Indication: BLOOD PRODUCT TRANSFUSION
     Route: 042
     Dates: start: 20080718, end: 20080819

REACTIONS (4)
  - CYTOMEGALOVIRUS VIRAEMIA [None]
  - FLUID RETENTION [None]
  - HYPERURICAEMIA [None]
  - RENAL IMPAIRMENT [None]
